FAERS Safety Report 11154737 (Version 3)
Quarter: 2015Q4

REPORT INFORMATION
  Report Type: Spontaneous
  Country: US (occurrence: US)
  Receive Date: 20150602
  Receipt Date: 20151001
  Transmission Date: 20160304
  Serious: No
  Sender: FDA-Public Use
  Company Number: US-009507513-1505USA002241

PATIENT
  Age: 15 Year
  Sex: Female
  Weight: 82.86 kg

DRUGS (1)
  1. NEXPLANON [Suspect]
     Active Substance: ETONOGESTREL
     Indication: MENORRHAGIA
     Dosage: 1 ROD/ 3 YEARS
     Route: 059
     Dates: start: 20140807

REACTIONS (6)
  - Weight increased [Not Recovered/Not Resolved]
  - Metrorrhagia [Unknown]
  - Menstrual disorder [Unknown]
  - Neck pain [Unknown]
  - Nausea [Unknown]
  - Haemorrhage [Not Recovered/Not Resolved]

NARRATIVE: CASE EVENT DATE: 20140807
